FAERS Safety Report 7023834-6 (Version None)
Quarter: 2010Q4

REPORT INFORMATION
  Report Type: 
  Country: None (occurrence: None)
  Receive Date: 20101001
  Receipt Date: 20100916
  Transmission Date: 20110411
  Serious: Yes (Other)
  Sender: FDA-Public Use
  Company Number: GB-RANBAXY-2010R1-38375

PATIENT

DRUGS (1)
  1. ISOTRETINOIN [Suspect]
     Indication: ACNE
     Dosage: 70 MG, UNK
     Route: 048
     Dates: start: 20100429, end: 20100831

REACTIONS (2)
  - DECREASED APPETITE [None]
  - WEIGHT DECREASED [None]
